FAERS Safety Report 5645349-X (Version None)
Quarter: 2008Q1

REPORT INFORMATION
  Report Type: 
  Country: None (occurrence: None)
  Receive Date: 20080229
  Receipt Date: 20080227
  Transmission Date: 20080703
  Serious: Yes (Hospitalization)
  Sender: FDA-Public Use
  Company Number: B0509871A

PATIENT
  Age: 61 Year
  Sex: Male

DRUGS (7)
  1. AUGMENTIN '125' [Suspect]
     Indication: ACUTE SINUSITIS
     Route: 048
     Dates: start: 20080108, end: 20080115
  2. SOLUPRED [Suspect]
     Indication: ACUTE SINUSITIS
     Route: 048
     Dates: start: 20080108
  3. MYOLASTAN [Suspect]
     Indication: MUSCLE CONTRACTIONS INVOLUNTARY
     Route: 048
     Dates: start: 20080108
  4. DOLIPRANE [Suspect]
     Indication: DRUG USE FOR UNKNOWN INDICATION
     Dosage: 1G PER DAY
     Route: 048
     Dates: start: 20080108
  5. SECTRAL [Concomitant]
     Dosage: 400MG PER DAY
     Route: 048
  6. ALDALIX [Concomitant]
     Dosage: 1CAP PER DAY
     Route: 048
  7. RIVOTRIL [Concomitant]
     Indication: DRUG USE FOR UNKNOWN INDICATION
     Route: 048

REACTIONS (6)
  - CHROMATURIA [None]
  - HEPATIC STEATOSIS [None]
  - HEPATITIS ACUTE [None]
  - JAUNDICE [None]
  - LIVER DISORDER [None]
  - PRURITUS [None]
